FAERS Safety Report 5618768-5 (Version None)
Quarter: 2008Q1

REPORT INFORMATION
  Report Type: 
  Country: None (occurrence: None)
  Receive Date: 20080207
  Receipt Date: 20080129
  Transmission Date: 20080703
  Serious: Yes (Death, Other)
  Sender: FDA-Public Use
  Company Number: US-ELI_LILLY_AND_COMPANY-US200801005382

PATIENT
  Age: 51 Year
  Sex: Male

DRUGS (2)
  1. XIGRIS [Suspect]
     Indication: SEPSIS
     Dosage: UNK, OTHER
     Dates: start: 20080117, end: 20080119
  2. ASPIRIN [Concomitant]
     Dosage: 325 MG, UNK
     Dates: start: 20000101

REACTIONS (4)
  - DEEP VEIN THROMBOSIS [None]
  - HAEMORRHAGE [None]
  - PROTHROMBIN TIME PROLONGED [None]
  - PULMONARY SEPSIS [None]
